FAERS Safety Report 16664023 (Version 1)
Quarter: 2019Q3

REPORT INFORMATION
  Report Type: Spontaneous
  Country: US (occurrence: US)
  Receive Date: 20190802
  Receipt Date: 20190802
  Transmission Date: 20191004
  Serious: No
  Sender: FDA-Public Use
  Company Number: US-AMGEN-USASP2019122270

PATIENT
  Age: 61 Year
  Sex: Female

DRUGS (5)
  1. AIMOVIG [Suspect]
     Active Substance: ERENUMAB-AOOE
     Indication: MIGRAINE PROPHYLAXIS
     Dosage: 140 MILLIGRAM, QMO
     Route: 065
     Dates: start: 201806, end: 201812
  2. AIMOVIG [Suspect]
     Active Substance: ERENUMAB-AOOE
     Dosage: 140 MILLIGRAM, QMO
     Route: 065
     Dates: start: 201906
  3. AIMOVIG [Suspect]
     Active Substance: ERENUMAB-AOOE
     Dosage: 70 MILLIGRAM, QMO
     Route: 065
     Dates: start: 201901, end: 201905
  4. HEPATITIS A VACCINE NOS [Suspect]
     Active Substance: HEPATITIS A VACCINE, INACTIVATED
     Indication: PRODUCT USED FOR UNKNOWN INDICATION
     Dosage: UNK
     Route: 065
     Dates: start: 201906
  5. HEPATITIS B VACCIN [Suspect]
     Active Substance: HEPATITIS B VIRUS VACCINE
     Indication: PRODUCT USED FOR UNKNOWN INDICATION
     Dosage: UNK
     Route: 065
     Dates: start: 20190723

REACTIONS (3)
  - Throat irritation [Unknown]
  - Upper-airway cough syndrome [Unknown]
  - Migraine [Unknown]

NARRATIVE: CASE EVENT DATE: 2019
